FAERS Safety Report 8832635 (Version 1)
Quarter: 2012Q4

REPORT INFORMATION
  Report Type: 
  Country: US (occurrence: US)
  Receive Date: 20121010
  Receipt Date: 20121010
  Transmission Date: 20130627
  Serious: No
  Sender: FDA-Public Use
  Company Number: US-PFIZER INC-2012246659

PATIENT
  Age: 65 Year
  Sex: Female
  Weight: 57.6 kg

DRUGS (1)
  1. GENOTROPIN MQ [Suspect]
     Indication: ROUTINE HEALTH MAINTENANCE
     Dosage: 0.4 mg, daily

REACTIONS (2)
  - Alopecia [Not Recovered/Not Resolved]
  - Drug administration error [Not Recovered/Not Resolved]
